FAERS Safety Report 17105415 (Version 1)
Quarter: 2019Q4

REPORT INFORMATION
  Report Type: Spontaneous
  Country: ES (occurrence: ES)
  Receive Date: 20191203
  Receipt Date: 20191203
  Transmission Date: 20200122
  Serious: Yes (Other)
  Sender: FDA-Public Use
  Company Number: ES-TEVA-2019-ES-1144874

PATIENT
  Age: 88 Year
  Sex: Female

DRUGS (2)
  1. LINEZOLID (1279A) [Suspect]
     Active Substance: LINEZOLID
     Indication: CELLULITIS
     Dosage: 600MG EVERY 24 HOURS
     Route: 048
     Dates: start: 20190207, end: 20190215
  2. MEROPENEM (7155A) [Suspect]
     Active Substance: MEROPENEM
     Indication: CELLULITIS
     Dosage: 1 GRAMS EVERY 12 HOURS
     Route: 042
     Dates: start: 20190207, end: 20190215

REACTIONS (1)
  - Eosinophilia [Recovered/Resolved]

NARRATIVE: CASE EVENT DATE: 20190211
